FAERS Safety Report 12100286 (Version 1)
Quarter: 2016Q1

REPORT INFORMATION
  Report Type: Spontaneous
  Country: US (occurrence: US)
  Receive Date: 20160222
  Receipt Date: 20160222
  Transmission Date: 20160526
  Serious: No
  Sender: FDA-Public Use
  Company Number: US-JNJFOC-20160200870

PATIENT
  Age: 38 Year
  Sex: Female

DRUGS (7)
  1. VALPROIC ACID. [Concomitant]
     Active Substance: VALPROIC ACID
     Route: 065
  2. LORAZEPAM. [Concomitant]
     Active Substance: LORAZEPAM
     Route: 048
  3. INVEGA SUSTENNA [Suspect]
     Active Substance: PALIPERIDONE PALMITATE
     Indication: PRODUCT USED FOR UNKNOWN INDICATION
     Route: 030
  4. BENZTROPINE [Concomitant]
     Active Substance: BENZTROPINE
     Route: 065
  5. INVEGA SUSTENNA [Suspect]
     Active Substance: PALIPERIDONE PALMITATE
     Indication: PRODUCT USED FOR UNKNOWN INDICATION
     Route: 030
  6. LORAZEPAM. [Concomitant]
     Active Substance: LORAZEPAM
     Route: 065
  7. DIPHENHYDRAMINE. [Concomitant]
     Active Substance: DIPHENHYDRAMINE
     Route: 048

REACTIONS (4)
  - Drug ineffective [Not Recovered/Not Resolved]
  - Off label use [Unknown]
  - Drug level increased [Not Recovered/Not Resolved]
  - Inappropriate schedule of drug administration [Unknown]
